FAERS Safety Report 21143901 (Version 1)
Quarter: 2022Q3

REPORT INFORMATION
  Report Type: Spontaneous
  Country: CA (occurrence: CA)
  Receive Date: 20220728
  Receipt Date: 20220728
  Transmission Date: 20221027
  Serious: Yes (Other)
  Sender: FDA-Public Use
  Company Number: None

PATIENT
  Age: 68 Year
  Sex: Female

DRUGS (8)
  1. SANDOSTATIN [Suspect]
     Active Substance: OCTREOTIDE ACETATE
     Indication: Carcinoid tumour
     Dosage: 30 MG, QMO
     Route: 030
  2. SANDOSTATIN [Suspect]
     Active Substance: OCTREOTIDE ACETATE
  3. SANDOSTATIN [Suspect]
     Active Substance: OCTREOTIDE ACETATE
  4. ONDANSETRON [Suspect]
     Active Substance: ONDANSETRON
     Indication: Muscle spasms
     Dosage: UNK
     Route: 065
  5. VALSARTAN [Suspect]
     Active Substance: VALSARTAN
     Indication: Hypertension
     Dosage: 30 MG
     Route: 048
  6. MORPHINE [Suspect]
     Active Substance: MORPHINE
     Indication: Product used for unknown indication
     Dosage: 5 MG, QD (SYRUP)
     Route: 065
  7. MORPHINE SULFATE [Suspect]
     Active Substance: MORPHINE SULFATE
     Indication: Product used for unknown indication
     Dosage: 5 MG, QD
     Route: 065
  8. MELOXICAM [Concomitant]
     Active Substance: MELOXICAM
     Indication: Product used for unknown indication
     Dosage: UNK, QD (1 EVERY 1 DAYS)
     Route: 065

REACTIONS (5)
  - Anxiety [Recovered/Resolved]
  - Blood pressure increased [Recovered/Resolved]
  - Discomfort [Recovered/Resolved]
  - Muscle spasms [Recovered/Resolved]
  - Injection site vesicles [Recovered/Resolved]
